FAERS Safety Report 4847098-4 (Version None)
Quarter: 2005Q4

REPORT INFORMATION
  Report Type: 
  Country: None (occurrence: None)
  Receive Date: 20051206
  Receipt Date: 20051206
  Transmission Date: 20060501
  Serious: Yes (Other)
  Sender: FDA-Public Use
  Company Number: None

PATIENT
  Sex: Male
  Weight: 89.4 kg

DRUGS (5)
  1. AMIFOSTINE [Suspect]
     Indication: AMYLOIDOSIS
     Dosage: SEE IMAGE
     Dates: start: 20051121, end: 20051122
  2. AMIFOSTINE [Suspect]
     Indication: AMYLOIDOSIS
     Dosage: SEE IMAGE
     Dates: start: 20051020
  3. G-CSF (FILGRASTIM, AMGEN) [Suspect]
     Dosage: SEE IMAGE
     Dates: start: 20051020, end: 20051031
  4. MELPHALAN [Suspect]
     Dosage: SEE IMAGE
     Dates: start: 20051122, end: 20051122
  5. MELPHALAN [Suspect]
     Dosage: SEE IMAGE
     Dates: start: 20051020

REACTIONS (5)
  - CHEST PAIN [None]
  - CORONARY ARTERY THROMBOSIS [None]
  - HYPOXIA [None]
  - PROCEDURAL COMPLICATION [None]
  - STEM CELL TRANSPLANT [None]
